FAERS Safety Report 23114306 (Version 1)
Quarter: 2023Q4

REPORT INFORMATION
  Report Type: Spontaneous
  Country: US (occurrence: None)
  Receive Date: 20231026
  Receipt Date: 20231026
  Transmission Date: 20240109
  Serious: Yes (unspecified)
  Sender: FDA-Public Use
  Company Number: None

PATIENT
  Age: 51 Year
  Sex: Female
  Weight: 73.8 kg

DRUGS (1)
  1. TATTOO NUMBING CREAM [Suspect]
     Active Substance: LIDOCAINE
     Route: 061
     Dates: start: 20231024, end: 20231024

REACTIONS (1)
  - Drug hypersensitivity [None]

NARRATIVE: CASE EVENT DATE: 20231024
